FAERS Safety Report 18865566 (Version 2)
Quarter: 2021Q2

REPORT INFORMATION
  Report Type: Spontaneous
  Country: US (occurrence: US)
  Receive Date: 20210209
  Receipt Date: 20210517
  Transmission Date: 20210717
  Serious: Yes (Other)
  Sender: FDA-Public Use
  Company Number: US-GLAXOSMITHKLINE-US2021GSK033226

PATIENT
  Sex: Female

DRUGS (4)
  1. ZANTAC [Suspect]
     Active Substance: RANITIDINE HYDROCHLORIDE
     Indication: GASTRIC ULCER
     Dosage: 75 MG, QD, 1X OR 2X PER DAY
     Route: 065
     Dates: start: 198801, end: 199701
  2. ZANTAC [Suspect]
     Active Substance: RANITIDINE HYDROCHLORIDE
     Dosage: 75 MG, QD, 1X OR 2X PER DAY
     Route: 065
     Dates: start: 198801, end: 199701
  3. ZANTAC [Suspect]
     Active Substance: RANITIDINE HYDROCHLORIDE
     Dosage: 150 MG, QD, 1X OR 2X PER DAY
     Route: 065
     Dates: start: 198801, end: 199701
  4. ZANTAC [Suspect]
     Active Substance: RANITIDINE HYDROCHLORIDE
     Indication: GASTRIC ULCER
     Dosage: 75 MG, QD, 1X OR 2X PER DAY
     Route: 065
     Dates: start: 198801, end: 199701

REACTIONS (2)
  - Haematological malignancy [Unknown]
  - Non-Hodgkin^s lymphoma [Unknown]
